FAERS Safety Report 5650407-X (Version None)
Quarter: 2008Q1

REPORT INFORMATION
  Report Type: 
  Country: None (occurrence: None)
  Receive Date: 20080303
  Receipt Date: 20080218
  Transmission Date: 20080703
  Serious: Yes (Hospitalization)
  Sender: FDA-Public Use
  Company Number: 2008BI000836

PATIENT
  Age: 56 Year
  Sex: Female
  Weight: 92 kg

DRUGS (9)
  1. AVONEX [Suspect]
     Indication: MULTIPLE SCLEROSIS
     Dosage: 30 UG;QW;IM
     Route: 030
     Dates: start: 20070201
  2. METAHEXAL [Concomitant]
  3. TRIAMTEREN [Concomitant]
  4. ALLOPURINOL [Concomitant]
  5. MYOCHOLINE [Concomitant]
  6. CITALOPRAM [Concomitant]
  7. MIRTAZAPINE [Concomitant]
  8. METFORMIN [Concomitant]
  9. CLIMOPAX [Concomitant]

REACTIONS (10)
  - DEPRESSION [None]
  - DISEASE RECURRENCE [None]
  - HYPERPLASIA [None]
  - INFLUENZA LIKE ILLNESS [None]
  - OVARIAN CYST [None]
  - RESTLESS LEGS SYNDROME [None]
  - SLEEP APNOEA SYNDROME [None]
  - UTERINE CERVIX ATROPHY [None]
  - UTERINE DISORDER [None]
  - VAGINAL HAEMORRHAGE [None]
